FAERS Safety Report 21099224 (Version 2)
Quarter: 2022Q3

REPORT INFORMATION
  Report Type: Spontaneous
  Country: CN (occurrence: None)
  Receive Date: 20220719
  Receipt Date: 20220726
  Transmission Date: 20221026
  Serious: Yes (Hospitalization)
  Sender: FDA-Public Use
  Company Number: 2022A253393

PATIENT
  Age: 32453 Day
  Sex: Male
  Weight: 45 kg

DRUGS (6)
  1. DURVALUMAB [Suspect]
     Active Substance: DURVALUMAB
     Indication: Radioimmunotherapy
     Route: 042
     Dates: start: 20220520, end: 20220613
  2. ETOPOSIDE [Concomitant]
     Active Substance: ETOPOSIDE
     Indication: Chemotherapy
     Route: 041
     Dates: start: 20220429, end: 20220613
  3. CARBOPLATIN [Concomitant]
     Active Substance: CARBOPLATIN
     Indication: Chemotherapy
     Route: 041
     Dates: start: 20220429, end: 20220613
  4. SODIUM CHLORIDE [Concomitant]
     Active Substance: SODIUM CHLORIDE
     Indication: Product used for unknown indication
     Route: 041
     Dates: start: 20220429, end: 20220613
  5. SODIUM CHLORIDE [Concomitant]
     Active Substance: SODIUM CHLORIDE
     Indication: Product used for unknown indication
     Route: 041
     Dates: start: 20220520, end: 20220613
  6. DEXTROSE [Concomitant]
     Active Substance: DEXTROSE
     Indication: Product used for unknown indication
     Route: 041
     Dates: start: 20220429, end: 20220613

REACTIONS (1)
  - Erythromelalgia [Recovering/Resolving]

NARRATIVE: CASE EVENT DATE: 20220623
